FAERS Safety Report 11088997 (Version 1)
Quarter: 2015Q2

REPORT INFORMATION
  Report Type: Report from Study
  Country: US (occurrence: US)
  Receive Date: 20150504
  Receipt Date: 20150504
  Transmission Date: 20150821
  Serious: Yes (Other)
  Sender: FDA-Public Use
  Company Number: PHEH2015US008392

PATIENT
  Age: 79 Year
  Sex: Female

DRUGS (1)
  1. EXELON PATCH [Suspect]
     Active Substance: RIVASTIGMINE
     Indication: PRODUCT USED FOR UNKNOWN INDICATION
     Dosage: 4.6 MG, QD
     Route: 062

REACTIONS (6)
  - Diabetes mellitus [Unknown]
  - Arthritis [Unknown]
  - Urinary incontinence [Unknown]
  - Neuropathy peripheral [Unknown]
  - Parkinson^s disease [Unknown]
  - Hypertension [Unknown]
